FAERS Safety Report 9293758 (Version 2)
Quarter: 2013Q2

REPORT INFORMATION
  Report Type: Spontaneous
  Country: US (occurrence: US)
  Receive Date: 20130516
  Receipt Date: 20130628
  Transmission Date: 20140414
  Serious: Yes (Hospitalization)
  Sender: FDA-Public Use
  Company Number: US-B.I. PHARMACEUTICALS,INC./RIDGEFIELD-2013-BI-13748BP

PATIENT
  Age: 85 Year
  Sex: Male
  Weight: 81.19 kg

DRUGS (8)
  1. PRADAXA [Suspect]
     Indication: ANTICOAGULANT THERAPY
     Dates: start: 20110111, end: 20120525
  2. NEXIUM [Concomitant]
  3. LIPITOR [Concomitant]
     Dates: start: 2002, end: 2012
  4. METOPROLOL SUE ER [Concomitant]
     Dates: start: 2002, end: 20120903
  5. ULORIC [Concomitant]
     Dates: end: 20120903
  6. LEVOTHYROX [Concomitant]
     Dates: start: 2002, end: 20120903
  7. FUROSEMIDE [Concomitant]
     Dates: start: 2002, end: 20120903
  8. QUINAPRIL [Concomitant]
     Dates: start: 2002, end: 20120903

REACTIONS (6)
  - Gastrointestinal haemorrhage [Unknown]
  - Confusional state [Unknown]
  - Gait disturbance [Unknown]
  - Fall [Unknown]
  - Anaemia [Unknown]
  - Purpura [Unknown]
